FAERS Safety Report 8133873-X (Version None)
Quarter: 2012Q1

REPORT INFORMATION
  Report Type: 
  Country: None (occurrence: None)
  Receive Date: 20120213
  Receipt Date: 20120202
  Transmission Date: 20120608
  Serious: Yes (Death, Hospitalization, Other)
  Sender: FDA-Public Use
  Company Number: BR-ELI_LILLY_AND_COMPANY-BR201109000129

PATIENT
  Sex: Male
  Weight: 42 kg

DRUGS (1)
  1. FORTEO [Suspect]
     Indication: OSTEOPOROSIS
     Dosage: 20 UG, QD
     Route: 065
     Dates: start: 20110806, end: 20110826

REACTIONS (10)
  - MULTI-ORGAN FAILURE [None]
  - BLEEDING VARICOSE VEIN [None]
  - CHOLANGITIS SCLEROSING [None]
  - CATHETER PLACEMENT [None]
  - NAUSEA [None]
  - LIVER DISORDER [None]
  - VOMITING [None]
  - CROHN'S DISEASE [None]
  - SHOCK HAEMORRHAGIC [None]
  - MALNUTRITION [None]
